FAERS Safety Report 6396213-2 (Version None)
Quarter: 2009Q4

REPORT INFORMATION
  Report Type: 
  Country: None (occurrence: None)
  Receive Date: 20091011
  Receipt Date: 20091002
  Transmission Date: 20100525
  Serious: Yes (Hospitalization)
  Sender: FDA-Public Use
  Company Number: PHHY2008CA14051

PATIENT
  Sex: Male

DRUGS (1)
  1. SANDOSTATIN LAR [Suspect]
     Indication: DYSPHAGIA
     Dosage: 20 MG, EVERY 4 WEEKS
     Route: 030
     Dates: start: 20051107, end: 20090930

REACTIONS (10)
  - ABDOMINAL DISTENSION [None]
  - BLOOD PRESSURE DECREASED [None]
  - DECUBITUS ULCER [None]
  - GASTROINTESTINAL TUBE INSERTION [None]
  - MECHANICAL VENTILATION [None]
  - PERITONITIS [None]
  - SECRETION DISCHARGE [None]
  - SURGERY [None]
  - TRACHEOSTOMY [None]
  - URINARY INCONTINENCE [None]
